FAERS Safety Report 9331419 (Version 2)
Quarter: 2013Q2

REPORT INFORMATION
  Report Type: Spontaneous
  Country: JP (occurrence: JP)
  Receive Date: 20130605
  Receipt Date: 20130626
  Transmission Date: 20140414
  Serious: Yes (Other)
  Sender: FDA-Public Use
  Company Number: JP-WATSON-2013-09719

PATIENT
  Age: 12 Year
  Sex: Male
  Weight: 30 kg

DRUGS (10)
  1. FENTANYL (UNKNOWN) [Suspect]
     Indication: PROCEDURAL PAIN
     Dosage: 200 MCG, TWICE, INJECTION
     Route: 042
  2. FENTANYL (UNKNOWN) [Suspect]
     Indication: ENDOTRACHEAL INTUBATION
     Dosage: 50 MCG, SINGLE
     Route: 065
  3. MIDAZOLAM [Concomitant]
     Indication: ENDOTRACHEAL INTUBATION
     Dosage: 3 MG, SINGLE
     Route: 065
  4. VECURONIUM [Concomitant]
     Indication: ENDOTRACHEAL INTUBATION
     Dosage: 4 MG, SINGLE
     Route: 065
  5. ROCURONIUM [Concomitant]
     Indication: ANAESTHESIA
     Dosage: 20 MG, SINGLE
     Route: 065
  6. SEVOFLURANE [Concomitant]
     Indication: MAINTENANCE OF ANAESTHESIA
     Dosage: 0.4 %, UNKNOWN
     Route: 065
  7. REMIFENTANIL [Concomitant]
     Indication: MAINTENANCE OF ANAESTHESIA
     Dosage: 0.1 MCG/MIN
     Route: 065
  8. OXYGEN [Concomitant]
     Indication: MAINTENANCE OF ANAESTHESIA
     Dosage: 3 L, Q1H
     Route: 055
  9. DOPAMINE [Concomitant]
     Indication: BLOOD PRESSURE MANAGEMENT
     Dosage: 6-8 MCG/KG/MIN
     Route: 042
  10. NORADRENALIN                       /00127501/ [Concomitant]
     Indication: BLOOD PRESSURE MANAGEMENT
     Dosage: 0.06-0.08 MCG/KG/MIN
     Route: 042

REACTIONS (1)
  - Anaphylactic reaction [Recovered/Resolved]
